FAERS Safety Report 5871151-X (Version None)
Quarter: 2008Q3

REPORT INFORMATION
  Report Type: 
  Country: None (occurrence: None)
  Receive Date: 20080902
  Receipt Date: 20080821
  Transmission Date: 20090109
  Serious: Yes (Other)
  Sender: FDA-Public Use
  Company Number: 2007BI009006

PATIENT
  Age: 45 Year
  Sex: Female

DRUGS (12)
  1. TYSABRI [Suspect]
     Indication: MULTIPLE SCLEROSIS
     Dosage: 300 MG;QM;IV
     Route: 042
     Dates: start: 20061206
  2. HYDROCODONE (CON.) [Concomitant]
  3. XANAX (CON.) [Concomitant]
  4. NEURONTIN (CON.) [Concomitant]
  5. BACLOFEN (CON.) [Concomitant]
  6. WELLBUTRIN XL (CON.) [Concomitant]
  7. LORCET (CON.) [Concomitant]
  8. LUNESTA (CON.) [Concomitant]
  9. PREMARIN (CON.) [Concomitant]
  10. IBUPROFEN (CON.) [Concomitant]
  11. ASA (CON.) [Concomitant]
  12. CALCIUM AND VITAMIN D (CON.) [Concomitant]

REACTIONS (10)
  - ALANINE AMINOTRANSFERASE INCREASED [None]
  - ASPARTATE AMINOTRANSFERASE INCREASED [None]
  - BLOOD ALBUMIN DECREASED [None]
  - BLOOD ALKALINE PHOSPHATASE INCREASED [None]
  - CONDITION AGGRAVATED [None]
  - CONVULSION [None]
  - GAMMA-GLUTAMYLTRANSFERASE INCREASED [None]
  - NASOPHARYNGITIS [None]
  - PROTEIN TOTAL DECREASED [None]
  - URINARY TRACT INFECTION [None]
